FAERS Safety Report 7082962-X (Version None)
Quarter: 2010Q4

REPORT INFORMATION
  Report Type: 
  Country: None (occurrence: None)
  Receive Date: 20101104
  Receipt Date: 20101021
  Transmission Date: 20110411
  Serious: Yes (Hospitalization, Other)
  Sender: FDA-Public Use
  Company Number: US-BAYER-201010004NA

PATIENT
  Age: 27 Year
  Sex: Female
  Weight: 77 kg

DRUGS (6)
  1. YAZ [Suspect]
     Indication: PRODUCT USED FOR UNKNOWN INDICATION
     Route: 048
  2. YASMIN [Suspect]
     Indication: ORAL CONTRACEPTION
     Route: 048
     Dates: start: 20070101, end: 20071101
  3. IBUPROFEN [Concomitant]
     Route: 048
  4. AMBIEN CR [Concomitant]
     Dosage: DOSE/REGIMEN - 12.5
     Route: 048
  5. HYDROCODONE [Concomitant]
     Indication: BILIARY COLIC
  6. COMPAZINE [Concomitant]
     Indication: BILIARY COLIC

REACTIONS (5)
  - ABDOMINAL PAIN UPPER [None]
  - BILIARY COLIC [None]
  - CHOLECYSTITIS [None]
  - NAUSEA [None]
  - VOMITING [None]
